FAERS Safety Report 17504085 (Version 2)
Quarter: 2020Q1

REPORT INFORMATION
  Report Type: Spontaneous
  Country: CZ (occurrence: CZ)
  Receive Date: 20200305
  Receipt Date: 20200313
  Transmission Date: 20200409
  Serious: Yes (Other)
  Sender: FDA-Public Use
  Company Number: NVSC2020CZ061265

PATIENT
  Age: 30 Year
  Sex: Female

DRUGS (1)
  1. CYCLOSPORINE. [Suspect]
     Active Substance: CYCLOSPORINE
     Indication: PSORIASIS
     Dosage: PARTIAL DOSE REDUCTION
     Route: 065

REACTIONS (3)
  - Gingival hypertrophy [Not Recovered/Not Resolved]
  - Skin disorder [Recovering/Resolving]
  - Diarrhoea [Not Recovered/Not Resolved]
